FAERS Safety Report 14917202 (Version 1)
Quarter: 2018Q2

REPORT INFORMATION
  Report Type: Report from Study
  Country: None (occurrence: GB)
  Receive Date: 20180521
  Receipt Date: 20180521
  Transmission Date: 20180711
  Serious: Yes (Hospitalization)
  Sender: FDA-Public Use
  Company Number: GB-ABBVIE-18K-167-2356514-00

PATIENT
  Age: 46 Year
  Sex: Female
  Weight: 94 kg

DRUGS (2)
  1. HUMIRA [Suspect]
     Active Substance: ADALIMUMAB
     Indication: RHEUMATOID ARTHRITIS
     Route: 058
     Dates: start: 20170115
  2. METHOTREXATE. [Concomitant]
     Active Substance: METHOTREXATE
     Indication: RHEUMATIC DISORDER

REACTIONS (13)
  - Coma scale abnormal [Unknown]
  - Diabetic gastroparesis [Unknown]
  - Acute kidney injury [Unknown]
  - Cholecystitis [Unknown]
  - Hyperglycaemia [Unknown]
  - Hypotension [Unknown]
  - Acute kidney injury [Unknown]
  - Gallbladder necrosis [Unknown]
  - Gastritis [Unknown]
  - Acute kidney injury [Recovered/Resolved]
  - Hyperglycaemia [Unknown]
  - Sepsis [Unknown]
  - Acute kidney injury [Unknown]

NARRATIVE: CASE EVENT DATE: 20171113
